FAERS Safety Report 4650518-1 (Version None)
Quarter: 2005Q2

REPORT INFORMATION
  Report Type: 
  Country: None (occurrence: None)
  Receive Date: 20050429
  Receipt Date: 20050420
  Transmission Date: 20051028
  Serious: Yes (Hospitalization)
  Sender: FDA-Public Use
  Company Number: 2005RR-00523

PATIENT
  Age: 76 Year
  Sex: Male

DRUGS (11)
  1. AMOXICILLIN AND CLAVULANATE POTASSIUM [Suspect]
     Dates: start: 20040911, end: 20040912
  2. RAMIPRIL [Suspect]
     Indication: HYPERTENSION
     Dosage: 5 MG, ORAL
     Route: 048
     Dates: end: 20040912
  3. DIAFORMIN [Concomitant]
  4. PRAVACHOL [Concomitant]
  5. AMARYL [Concomitant]
  6. VIOXX [Concomitant]
  7. AROPAX [Concomitant]
  8. VASOCARDOL [Concomitant]
  9. ARATAC [Concomitant]
  10. SERETIDE [Concomitant]
  11. ATROVENT [Concomitant]

REACTIONS (15)
  - ANGINA UNSTABLE [None]
  - ANION GAP INCREASED [None]
  - BLOOD CREATININE INCREASED [None]
  - BLOOD PHOSPHORUS INCREASED [None]
  - BLOOD UREA INCREASED [None]
  - CARDIAC DISORDER [None]
  - CARDIAC ENZYMES INCREASED [None]
  - GAMMA-GLUTAMYLTRANSFERASE INCREASED [None]
  - HYPERSENSITIVITY [None]
  - HYPOTENSION [None]
  - NAUSEA [None]
  - TENDON INJURY [None]
  - TROPONIN INCREASED [None]
  - URINARY TRACT INFECTION [None]
  - VENTRICULAR HYPOKINESIA [None]
